FAERS Safety Report 9852337 (Version 1)
Quarter: 2014Q1

REPORT INFORMATION
  Report Type: Report from Study
  Country: AR (occurrence: AR)
  Receive Date: 20140129
  Receipt Date: 20140129
  Transmission Date: 20141002
  Serious: Yes (Hospitalization)
  Sender: FDA-Public Use
  Company Number: AR-ROXANE LABORATORIES, INC.-2014-BI-02894GD

PATIENT
  Sex: 0

DRUGS (1)
  1. MORPHINE [Suspect]

REACTIONS (1)
  - Ileus [Unknown]
